FAERS Safety Report 7041657-9 (Version None)
Quarter: 2010Q4

REPORT INFORMATION
  Report Type: 
  Country: None (occurrence: None)
  Receive Date: 20101013
  Receipt Date: 20091215
  Transmission Date: 20110411
  Serious: No
  Sender: FDA-Public Use
  Company Number: US-ASTRAZENECA-2009SE21980

PATIENT
  Age: 63 Year
  Sex: Male
  Weight: 106.6 kg

DRUGS (6)
  1. SYMBICORT [Suspect]
     Dosage: 160/4.5 UG, 2 PUFFS
     Route: 055
     Dates: start: 20090921
  2. COMBIVENT [Concomitant]
  3. LISINOPRIL [Concomitant]
  4. HYDROCHLOROTHIAZIDE [Concomitant]
  5. AMLODIPINE [Concomitant]
  6. ATENOLOL [Concomitant]

REACTIONS (3)
  - CONTUSION [None]
  - INCORRECT DOSE ADMINISTERED [None]
  - INTENTIONAL OVERDOSE [None]
